FAERS Safety Report 8631252 (Version 6)
Quarter: 2013Q1

REPORT INFORMATION
  Report Type: Spontaneous
  Country: BR (occurrence: BR)
  Receive Date: 20120622
  Receipt Date: 20130130
  Transmission Date: 20140127
  Serious: Yes (Other)
  Sender: FDA-Public Use
  Company Number: BR-US-EMD SERONO, INC.-7140458

PATIENT
  Sex: Female

DRUGS (2)
  1. REBIF [Suspect]
     Indication: RELAPSING-REMITTING MULTIPLE SCLEROSIS
     Route: 058
     Dates: start: 20111111, end: 20111215
  2. REBIF [Suspect]
     Dates: start: 20120201

REACTIONS (4)
  - Petit mal epilepsy [Recovered/Resolved]
  - Apathy [Unknown]
  - Injection site haematoma [Recovered/Resolved]
  - Injection site erythema [Unknown]
